FAERS Safety Report 9147174 (Version 2)
Quarter: 2013Q2

REPORT INFORMATION
  Report Type: Spontaneous
  Country: GB (occurrence: GB)
  Receive Date: 20130307
  Receipt Date: 20130621
  Transmission Date: 20140414
  Serious: Yes (Hospitalization, Other)
  Sender: FDA-Public Use
  Company Number: GB-ELI_LILLY_AND_COMPANY-GB201302010087

PATIENT
  Sex: Female

DRUGS (1)
  1. HUMULIN REGULAR [Suspect]
     Dosage: UNK UNK, UNKNOWN
     Dates: start: 20130116

REACTIONS (2)
  - Pancreatic carcinoma [Unknown]
  - Liver disorder [Unknown]
